FAERS Safety Report 14612707 (Version 6)
Quarter: 2018Q4

REPORT INFORMATION
  Report Type: Report from Study
  Country: DE (occurrence: DE)
  Receive Date: 20180308
  Receipt Date: 20181218
  Transmission Date: 20190204
  Serious: Yes (Hospitalization, Other)
  Sender: FDA-Public Use
  Company Number: DE-ROCHE-2077243

PATIENT
  Age: 51 Year
  Sex: Female

DRUGS (5)
  1. SPASMEX (GERMANY) [Concomitant]
  2. ORTOTON [Concomitant]
     Dosage: FILM COATED TABLET
     Route: 065
  3. OCREVUS [Suspect]
     Active Substance: OCRELIZUMAB
     Indication: MULTIPLE SCLEROSIS
     Dosage: 27/FEB/2018
     Route: 042
     Dates: start: 20180213, end: 20180213
  4. OCREVUS [Suspect]
     Active Substance: OCRELIZUMAB
     Dosage: 2ND INFUSION
     Route: 042
  5. OCREVUS [Suspect]
     Active Substance: OCRELIZUMAB
     Dosage: 3RD INFUSION
     Route: 042
     Dates: start: 20180828

REACTIONS (11)
  - Nasopharyngitis [Recovered/Resolved]
  - Menstruation irregular [Not Recovered/Not Resolved]
  - Blood iron decreased [Recovering/Resolving]
  - Cystitis noninfective [Recovered/Resolved]
  - Gait disturbance [Not Recovered/Not Resolved]
  - Menorrhagia [Not Recovered/Not Resolved]
  - Nausea [Recovered/Resolved]
  - Swelling face [Recovered/Resolved]
  - Loss of control of legs [Not Recovered/Not Resolved]
  - Fatigue [Recovered/Resolved]
  - Vomiting [Unknown]

NARRATIVE: CASE EVENT DATE: 20180214
